FAERS Safety Report 7325023-4 (Version None)
Quarter: 2011Q1

REPORT INFORMATION
  Report Type: 
  Country: None (occurrence: None)
  Receive Date: 20110301
  Receipt Date: 20110222
  Transmission Date: 20110831
  Serious: Yes (Hospitalization, Other)
  Sender: FDA-Public Use
  Company Number: JP-AMGEN-JPNSP2010001497

PATIENT
  Age: 13 Year
  Sex: Female

DRUGS (27)
  1. NEUPOGEN [Suspect]
     Indication: PRODUCT USED FOR UNKNOWN INDICATION
     Dosage: 50 A?G, QD
     Route: 042
     Dates: start: 20100519, end: 20100522
  2. RIBAVIRIN [Suspect]
     Dosage: 200 MG, BID
     Route: 048
     Dates: start: 20100301
  3. ZEMPLAR [Concomitant]
     Dosage: UNK
     Dates: start: 20100113
  4. SENSIPAR [Concomitant]
  5. PREDNISOLONE [Suspect]
     Indication: PRODUCT USED FOR UNKNOWN INDICATION
     Dosage: 10 MG, UNK
     Route: 048
     Dates: start: 20091127
  6. AMBIEN [Concomitant]
  7. DIPYRIDAMOLE [Concomitant]
     Dosage: UNK
     Dates: start: 20091127, end: 20100513
  8. BENTYL [Concomitant]
  9. EPOGEN [Suspect]
     Indication: RENAL FAILURE CHRONIC
     Dosage: UNK UNK, Q3WK
     Route: 042
     Dates: start: 20070101, end: 20100928
  10. NEURONTIN [Concomitant]
     Dosage: UNK
     Dates: start: 20100113
  11. PRILOSEC [Concomitant]
  12. MIRAPEX                            /01356401/ [Concomitant]
  13. VALGANCICLOVIR [Suspect]
     Indication: SMALL INTESTINE TRANSPLANT
     Dosage: 450 MG, UNK
     Route: 048
     Dates: start: 20091127, end: 20100519
  14. CODEINE [Concomitant]
  15. ATARAX [Concomitant]
  16. DIOVAN [Concomitant]
  17. BAKTAR [Suspect]
     Indication: SMALL INTESTINE TRANSPLANT
     Dosage: UNK
     Route: 048
     Dates: start: 20091127, end: 20100519
  18. MYCOCYST [Suspect]
     Indication: PRODUCT USED FOR UNKNOWN INDICATION
     Dosage: 100 MG, UNK
     Route: 048
     Dates: start: 20091127
  19. BIOFERMIN [Concomitant]
     Dosage: UNK
     Dates: start: 20091127
  20. LABETALOL                          /00422302/ [Concomitant]
  21. RENVELA [Concomitant]
  22. CIALIS [Concomitant]
  23. TYLENOL (CAPLET) [Concomitant]
  24. ACYCLOVIR [Suspect]
     Indication: SMALL INTESTINE TRANSPLANT
     Dosage: UNK
     Route: 048
     Dates: start: 20091130
  25. TAKEPRON [Suspect]
     Indication: PRODUCT USED FOR UNKNOWN INDICATION
     Dosage: 15 MG, UNK
     Route: 048
     Dates: start: 20091127
  26. PROGRAF [Suspect]
     Indication: PRODUCT USED FOR UNKNOWN INDICATION
     Dosage: 7 MG, UNK
     Route: 048
     Dates: start: 20091127
  27. AMLODIPINE BESYLATE [Concomitant]
     Dosage: UNK
     Dates: start: 20100113

REACTIONS (13)
  - FOLLICULITIS [None]
  - NEUTROPENIA [None]
  - WHITE BLOOD CELL COUNT DECREASED [None]
  - ANAEMIA [None]
  - RETROPERITONEAL HAEMORRHAGE [None]
  - INGUINAL HERNIA REPAIR [None]
  - NO THERAPEUTIC RESPONSE [None]
  - HYPERPARATHYROIDISM SECONDARY [None]
  - MENISCUS LESION [None]
  - STAPHYLOCOCCAL INFECTION [None]
  - PNEUMONIA [None]
  - WEIGHT DECREASED [None]
  - HYPERLIPIDAEMIA [None]
